FAERS Safety Report 14839883 (Version 4)
Quarter: 2018Q3

REPORT INFORMATION
  Report Type: Report from Study
  Country: None (occurrence: US)
  Receive Date: 20180503
  Receipt Date: 20180831
  Transmission Date: 20181010
  Serious: Yes (Other)
  Sender: FDA-Public Use
  Company Number: US-ABBVIE-17K-163-1844974-00

PATIENT
  Age: 57 Year
  Sex: Male

DRUGS (6)
  1. HUMIRA [Suspect]
     Active Substance: ADALIMUMAB
     Route: 058
     Dates: start: 20180329, end: 20180721
  2. HUMIRA [Suspect]
     Active Substance: ADALIMUMAB
     Route: 058
     Dates: start: 2017, end: 20171223
  3. METHOTREXATE. [Suspect]
     Active Substance: METHOTREXATE
     Indication: PRODUCT USED FOR UNKNOWN INDICATION
     Route: 065
  4. HUMIRA [Suspect]
     Active Substance: ADALIMUMAB
     Indication: RHEUMATOID ARTHRITIS
     Route: 058
     Dates: start: 20161219
  5. HUMIRA [Suspect]
     Active Substance: ADALIMUMAB
     Route: 058
     Dates: end: 20180315
  6. HUMIRA [Suspect]
     Active Substance: ADALIMUMAB
     Route: 058
     Dates: start: 20170107, end: 2017

REACTIONS (71)
  - Fall [Recovered/Resolved]
  - Fall [Unknown]
  - Upper respiratory tract infection [Recovered/Resolved]
  - Peripheral sensorimotor neuropathy [Unknown]
  - Upper respiratory tract infection [Recovered/Resolved]
  - Lower respiratory tract infection [Recovering/Resolving]
  - Upper respiratory tract infection [Recovered/Resolved]
  - Bronchitis [Recovered/Resolved]
  - Upper-airway cough syndrome [Unknown]
  - Hypoaesthesia [Not Recovered/Not Resolved]
  - Arthritis [Not Recovered/Not Resolved]
  - Therapeutic response shortened [Recovered/Resolved]
  - Pain in extremity [Not Recovered/Not Resolved]
  - Influenza like illness [Recovered/Resolved with Sequelae]
  - Neck pain [Unknown]
  - Pain in extremity [Unknown]
  - Bronchitis [Recovered/Resolved]
  - Productive cough [Recovered/Resolved]
  - Pre-existing condition improved [Unknown]
  - Grip strength decreased [Unknown]
  - Back injury [Unknown]
  - Anxiety [Recovering/Resolving]
  - Paraesthesia [Unknown]
  - Nausea [Recovered/Resolved]
  - Influenza [Recovered/Resolved]
  - Injection site reaction [Unknown]
  - Carpal tunnel syndrome [Not Recovered/Not Resolved]
  - Asthenia [Recovered/Resolved]
  - Gait disturbance [Recovering/Resolving]
  - Head injury [Unknown]
  - Neutrophil count abnormal [Unknown]
  - Joint stiffness [Not Recovered/Not Resolved]
  - Agitation [Unknown]
  - Musculoskeletal stiffness [Unknown]
  - Arthralgia [Not Recovered/Not Resolved]
  - Nausea [Recovered/Resolved with Sequelae]
  - Pain [Recovered/Resolved with Sequelae]
  - Wheezing [Recovered/Resolved]
  - Malaise [Unknown]
  - Muscle mass [Recovered/Resolved with Sequelae]
  - White blood cell disorder [Unknown]
  - Mean cell haemoglobin concentration abnormal [Unknown]
  - Sinusitis [Recovered/Resolved]
  - Rheumatoid arthritis [Unknown]
  - Pain [Recovering/Resolving]
  - Sinusitis [Recovered/Resolved]
  - Inflammation [Recovered/Resolved]
  - Therapeutic response unexpected [Unknown]
  - Lymphocyte count abnormal [Unknown]
  - Rhinorrhoea [Unknown]
  - Mood swings [Unknown]
  - Sleep disorder [Unknown]
  - Pain [Recovered/Resolved]
  - Joint swelling [Not Recovered/Not Resolved]
  - Feeling abnormal [Recovered/Resolved]
  - Scab [Unknown]
  - Feeling hot [Recovering/Resolving]
  - Blood glucose increased [Unknown]
  - Fall [Recovered/Resolved]
  - Back pain [Not Recovered/Not Resolved]
  - Musculoskeletal pain [Unknown]
  - Nausea [Unknown]
  - Therapeutic response shortened [Not Recovered/Not Resolved]
  - Joint injury [Unknown]
  - Sensitivity to weather change [Unknown]
  - Contusion [Unknown]
  - Pruritus [Not Recovered/Not Resolved]
  - Hepatic enzyme increased [Unknown]
  - Peripheral swelling [Unknown]
  - Limb discomfort [Recovered/Resolved]
  - Drug effect decreased [Not Recovered/Not Resolved]

NARRATIVE: CASE EVENT DATE: 2016
